FAERS Safety Report 9865902 (Version 2)
Quarter: 2014Q1

REPORT INFORMATION
  Report Type: Spontaneous
  Country: US (occurrence: US)
  Receive Date: 20140203
  Receipt Date: 20140203
  Transmission Date: 20141002
  Serious: No
  Sender: FDA-Public Use
  Company Number: US-ALLERGAN-1313893US

PATIENT
  Age: 79 Year
  Sex: Female

DRUGS (8)
  1. RESTASIS [Suspect]
     Indication: DRY EYE
     Dosage: 2 GTT, BID
     Route: 047
     Dates: start: 20130601, end: 20130906
  2. REFRESH OPTIVE [Concomitant]
     Indication: DRY EYE
     Dosage: 2 GTT, BID
     Route: 047
  3. HYPERTENSION MEDICATIONS NOS [Concomitant]
     Indication: HYPERTENSION
     Dosage: UNK
  4. RECLAST [Concomitant]
     Indication: OSTEOPOROSIS
     Dosage: UNK
  5. VITAMIN E                          /00110501/ [Concomitant]
     Indication: PRODUCT USED FOR UNKNOWN INDICATION
     Dosage: UNK
  6. MULTIVITAMIN                       /00097801/ [Concomitant]
     Indication: PRODUCT USED FOR UNKNOWN INDICATION
     Dosage: UNK
  7. SIMVASTATIN [Concomitant]
     Indication: BLOOD CHOLESTEROL
     Dosage: UNK
  8. ASA [Concomitant]
     Indication: PRODUCT USED FOR UNKNOWN INDICATION
     Dosage: UNK

REACTIONS (2)
  - Abnormal sensation in eye [Recovered/Resolved]
  - Eye irritation [Recovered/Resolved]
